FAERS Safety Report 8662465 (Version 2)
Quarter: 2012Q4

REPORT INFORMATION
  Report Type: 
  Country: US (occurrence: US)
  Receive Date: 20120712
  Receipt Date: 20121012
  Transmission Date: 20130627
  Serious: No
  Sender: FDA-Public Use
  Company Number: US-PFIZER INC-2012165511

PATIENT
  Age: 83 Year
  Sex: Female
  Weight: 50.34 kg

DRUGS (5)
  1. LIPITOR [Suspect]
     Indication: HYPERTENSION
     Dosage: 10 mg, daily
     Route: 048
  2. GABAPENTIN [Suspect]
     Indication: NEUROPATHY PERIPHERAL
     Dosage: UNK
  3. FOSAMAX [Concomitant]
     Indication: BONE DISORDER
     Dosage: 70 mg, weekly
  4. VASOTEC [Concomitant]
     Indication: HYPERTENSION
     Dosage: 5 mg, daily
  5. POTASSIUM [Concomitant]
     Indication: BONE DISORDER
     Dosage: 40 mg, monthly

REACTIONS (3)
  - Drug ineffective [Unknown]
  - Neuropathy peripheral [Not Recovered/Not Resolved]
  - Gait disturbance [Not Recovered/Not Resolved]
